FAERS Safety Report 16849241 (Version 1)
Quarter: 2019Q3

REPORT INFORMATION
  Report Type: Spontaneous
  Country: US (occurrence: US)
  Receive Date: 20190925
  Receipt Date: 20190925
  Transmission Date: 20191005
  Serious: Yes (Other)
  Sender: FDA-Public Use
  Company Number: US-DRREDDYS-USA/USA/19/0114344

PATIENT
  Age: 79 Year
  Sex: Male

DRUGS (2)
  1. PANTOPRAZOLE SODIUM DR TABLETS 20MG AND  40MG [Suspect]
     Active Substance: PANTOPRAZOLE SODIUM
     Indication: OESOPHAGEAL ULCER
  2. PANTOPRAZOLE SODIUM DR TABLETS 20MG AND  40MG [Suspect]
     Active Substance: PANTOPRAZOLE SODIUM

REACTIONS (1)
  - Subacute cutaneous lupus erythematosus [Recovered/Resolved]
